FAERS Safety Report 13860001 (Version 1)
Quarter: 2017Q3

REPORT INFORMATION
  Report Type: Spontaneous
  Country: RO (occurrence: RO)
  Receive Date: 20170811
  Receipt Date: 20170811
  Transmission Date: 20171127
  Serious: Yes (Other)
  Sender: FDA-Public Use
  Company Number: RO-TEVA-794464ROM

PATIENT
  Age: 38 Year
  Sex: Male

DRUGS (4)
  1. LOPINAVIR, RITONAVIR [Suspect]
     Active Substance: LOPINAVIR\RITONAVIR
     Indication: ACQUIRED IMMUNODEFICIENCY SYNDROME
     Route: 065
  2. NEVIRAPINE. [Suspect]
     Active Substance: NEVIRAPINE
     Indication: ACQUIRED IMMUNODEFICIENCY SYNDROME
     Route: 065
  3. LAMIVUDINE, ABACAVIR [Suspect]
     Active Substance: ABACAVIR\LAMIVUDINE
     Indication: ACQUIRED IMMUNODEFICIENCY SYNDROME
     Route: 065
  4. LAMIVUDINE AND ZIDOVUDINE [Suspect]
     Active Substance: LAMIVUDINE\ZIDOVUDINE
     Indication: ACQUIRED IMMUNODEFICIENCY SYNDROME
     Route: 065

REACTIONS (3)
  - Osteonecrosis [None]
  - Osteonecrosis [Unknown]
  - Osteoporosis [Unknown]
